FAERS Safety Report 16958424 (Version 2)
Quarter: 2019Q4

REPORT INFORMATION
  Report Type: Spontaneous
  Country: IT (occurrence: IT)
  Receive Date: 20191024
  Receipt Date: 20191031
  Transmission Date: 20200122
  Serious: Yes (Other)
  Sender: FDA-Public Use
  Company Number: NVSC2019IT012869

PATIENT
  Age: 66 Year
  Sex: Female

DRUGS (11)
  1. PREDNISONE. [Suspect]
     Active Substance: PREDNISONE
     Indication: LYMPHOPLASMACYTOID LYMPHOMA/IMMUNOCYTOMA
     Dosage: 50 MG, CYCLIC (D1)
     Route: 048
     Dates: start: 201710, end: 201711
  2. EUTIROX [Concomitant]
     Active Substance: LEVOTHYROXINE SODIUM
     Indication: PRODUCT USED FOR UNKNOWN INDICATION
     Dosage: UNK
     Route: 065
  3. FURSEMIDE [Concomitant]
     Active Substance: FUROSEMIDE
     Indication: PRODUCT USED FOR UNKNOWN INDICATION
     Dosage: UNK
     Route: 065
  4. CYCLOPHOSPHAMIDE. [Suspect]
     Active Substance: CYCLOPHOSPHAMIDE
     Indication: LYMPHOPLASMACYTOID LYMPHOMA/IMMUNOCYTOMA
     Dosage: 750 MG, CYCLIC (D1)
     Route: 042
     Dates: start: 201710, end: 201711
  5. DOXORUBICIN [Suspect]
     Active Substance: DOXORUBICIN
     Indication: LYMPHOPLASMACYTOID LYMPHOMA/IMMUNOCYTOMA
     Dosage: 50 MG, CYCLIC (D1)
     Route: 042
     Dates: start: 201710, end: 201711
  6. ACICLOVIR [Concomitant]
     Active Substance: ACYCLOVIR
     Indication: PRODUCT USED FOR UNKNOWN INDICATION
     Dosage: UNK
     Route: 065
  7. PARACETAMOLO [Concomitant]
     Active Substance: ACETAMINOPHEN
     Indication: PRODUCT USED FOR UNKNOWN INDICATION
     Dosage: UNK
     Route: 065
  8. VINCRISTINE [Suspect]
     Active Substance: VINCRISTINE
     Indication: LYMPHOPLASMACYTOID LYMPHOMA/IMMUNOCYTOMA
     Dosage: 1.4 MG, CYCLIC (D1)
     Route: 042
     Dates: start: 201710, end: 201711
  9. ALLOPURINOLO [Concomitant]
     Active Substance: ALLOPURINOL
     Indication: PRODUCT USED FOR UNKNOWN INDICATION
     Dosage: UNK
     Route: 065
  10. SPIRONOLACTONE. [Concomitant]
     Active Substance: SPIRONOLACTONE
     Indication: PRODUCT USED FOR UNKNOWN INDICATION
     Dosage: UNK
     Route: 065
  11. BACTRIM [Concomitant]
     Active Substance: SULFAMETHOXAZOLE\TRIMETHOPRIM
     Indication: PRODUCT USED FOR UNKNOWN INDICATION
     Dosage: UNK
     Route: 065

REACTIONS (3)
  - Lymphocytosis [Unknown]
  - Thrombocytopenia [Unknown]
  - Anaemia [Unknown]

NARRATIVE: CASE EVENT DATE: 201710
